FAERS Safety Report 7966993-0 (Version None)
Quarter: 2011Q4

REPORT INFORMATION
  Report Type: 
  Country: None (occurrence: None)
  Receive Date: 20111207
  Receipt Date: 20111207
  Transmission Date: 20120403
  Serious: Yes (Hospitalization, Other)
  Sender: FDA-Public Use
  Company Number: None

PATIENT
  Age: 85 Year
  Sex: Male
  Weight: 87.3 kg

DRUGS (1)
  1. FONDAPARINUX SODIUM [Suspect]
     Indication: PORTAL VEIN THROMBOSIS
     Dosage: 7.5 MG EVERY DAY SQ
     Route: 058
     Dates: start: 20110729, end: 20110818

REACTIONS (5)
  - DRUG ADMINISTRATION ERROR [None]
  - ANAEMIA [None]
  - SCROTAL HAEMATOCOELE [None]
  - TREATMENT NONCOMPLIANCE [None]
  - INTRA-ABDOMINAL HAEMORRHAGE [None]
